FAERS Safety Report 9276607 (Version 3)
Quarter: 2013Q2

REPORT INFORMATION
  Report Type: Spontaneous
  Country: US (occurrence: US)
  Receive Date: 20130507
  Receipt Date: 20130619
  Transmission Date: 20140414
  Serious: Yes (Hospitalization)
  Sender: FDA-Public Use
  Company Number: US-009507513-1305USA001784

PATIENT
  Age: 72 Year
  Sex: Female
  Weight: 58.96 kg

DRUGS (3)
  1. JANUMET [Suspect]
     Indication: TYPE 2 DIABETES MELLITUS
     Dosage: 50/500MG, BID
     Route: 048
     Dates: start: 201007, end: 20130425
  2. GLIPIZIDE [Concomitant]
  3. SERTRALINE HYDROCHLORIDE [Concomitant]
     Dosage: UNK
     Dates: end: 201304

REACTIONS (4)
  - Dehydration [Recovered/Resolved]
  - Anxiety [Recovered/Resolved]
  - Vomiting [Recovered/Resolved]
  - Nausea [Recovered/Resolved]
